FAERS Safety Report 18940745 (Version 2)
Quarter: 2021Q1

REPORT INFORMATION
  Report Type: Spontaneous
  Country: US (occurrence: US)
  Receive Date: 20210225
  Receipt Date: 20210324
  Transmission Date: 20210420
  Serious: Yes (Other)
  Sender: FDA-Public Use
  Company Number: US-NOVOPROD-788707

PATIENT
  Age: 77 Year
  Sex: Female

DRUGS (1)
  1. NOVOLOG MIX 70/30 [Suspect]
     Active Substance: INSULIN ASPART
     Indication: TYPE 2 DIABETES MELLITUS
     Dosage: 105 IU
     Route: 065

REACTIONS (6)
  - Colitis ulcerative [Not Recovered/Not Resolved]
  - Diabetes mellitus inadequate control [Unknown]
  - Glycosylated haemoglobin increased [Unknown]
  - Blood glucose increased [Not Recovered/Not Resolved]
  - Product quality issue [Unknown]
  - Injection site pain [Unknown]

NARRATIVE: CASE EVENT DATE: 20190101
